FAERS Safety Report 6196841-3 (Version None)
Quarter: 2009Q2

REPORT INFORMATION
  Report Type: 
  Country: None (occurrence: None)
  Receive Date: 20090520
  Receipt Date: 20090513
  Transmission Date: 20091009
  Serious: Yes (Hospitalization)
  Sender: FDA-Public Use
  Company Number: US-B.I. PHARMACEUTICALS,INC./RIDGEFIELD-2009-BP-06038BP

PATIENT
  Age: 43 Year
  Sex: Female

DRUGS (3)
  1. MIRAPEX [Suspect]
     Indication: RESTLESS LEGS SYNDROME
     Dosage: .75MG
     Route: 048
     Dates: start: 20070101, end: 20090401
  2. TRAZODONE HCL [Concomitant]
     Indication: DEPRESSION
  3. PROZAC [Concomitant]
     Indication: DEPRESSION

REACTIONS (4)
  - CLOSTRIDIAL INFECTION [None]
  - DEHYDRATION [None]
  - LOSS OF CONSCIOUSNESS [None]
  - MEDICATION ERROR [None]
